FAERS Safety Report 16781405 (Version 6)
Quarter: 2022Q1

REPORT INFORMATION
  Report Type: Spontaneous
  Country: US (occurrence: US)
  Receive Date: 20190906
  Receipt Date: 20220205
  Transmission Date: 20220424
  Serious: Yes (Other)
  Sender: FDA-Public Use
  Company Number: US-SA-2019SA243843

PATIENT
  Age: 77 Year
  Sex: Female

DRUGS (11)
  1. DUPILUMAB [Suspect]
     Active Substance: DUPILUMAB
     Indication: Eczema
     Dosage: 600 MG, 1X
     Route: 058
     Dates: start: 20190610, end: 20190610
  2. DUPILUMAB [Suspect]
     Active Substance: DUPILUMAB
     Indication: Dermatitis atopic
     Dosage: 300 MG, QOW
     Route: 058
     Dates: start: 201906
  3. PFIZER-BIONTECH COVID-19 VACCINE [Suspect]
     Active Substance: TOZINAMERAN
     Indication: Immunisation
     Dosage: UNK
     Dates: start: 202102, end: 202102
  4. PFIZER-BIONTECH COVID-19 VACCINE [Suspect]
     Active Substance: TOZINAMERAN
     Dosage: UNK
     Dates: start: 20210831, end: 20210831
  5. PFIZER-BIONTECH COVID-19 VACCINE [Suspect]
     Active Substance: TOZINAMERAN
     Dosage: UNK
     Dates: start: 20211221, end: 20211221
  6. ACETIC ACID;HYDROCORTISONE [Concomitant]
  7. ELIDEL [Concomitant]
     Active Substance: PIMECROLIMUS
  8. TRIAMCINOLONE ACETONIDE [Concomitant]
     Active Substance: TRIAMCINOLONE ACETONIDE
  9. COVID-19 VACCINE [Concomitant]
  10. GABAPENTIN [Concomitant]
     Active Substance: GABAPENTIN
  11. SYNTHROID [Concomitant]
     Active Substance: LEVOTHYROXINE SODIUM

REACTIONS (20)
  - Neuropathy peripheral [Unknown]
  - Vaccination complication [Recovering/Resolving]
  - Myalgia [Recovered/Resolved]
  - Pyrexia [Recovering/Resolving]
  - Feeling abnormal [Recovering/Resolving]
  - Dysphonia [Recovering/Resolving]
  - Small fibre neuropathy [Not Recovered/Not Resolved]
  - Condition aggravated [Unknown]
  - Pruritus [Recovering/Resolving]
  - Hypertrichosis [Not Recovered/Not Resolved]
  - Visual impairment [Not Recovered/Not Resolved]
  - Epistaxis [Unknown]
  - Eyelid contusion [Unknown]
  - Dizziness [Unknown]
  - Abdominal discomfort [Unknown]
  - Rash pruritic [Unknown]
  - Rash papular [Unknown]
  - Eczema [Not Recovered/Not Resolved]
  - Device use issue [Unknown]
  - Therapeutic response decreased [Unknown]

NARRATIVE: CASE EVENT DATE: 20210201
